FAERS Safety Report 8107369-5 (Version None)
Quarter: 2011Q4

REPORT INFORMATION
  Report Type: 
  Country: None (occurrence: None)
  Receive Date: 20111227
  Receipt Date: 20111122
  Transmission Date: 20120403
  Serious: No
  Sender: FDA-Public Use
  Company Number: PHEH2011US010112

PATIENT
  Age: 51 Year
  Sex: Female
  Weight: 80.7 kg

DRUGS (23)
  1. CORTEF [Concomitant]
  2. MIDODRINE HYDROCHLORIDE [Concomitant]
  3. BACLOFEN [Concomitant]
  4. ZANAFLEX [Concomitant]
  5. OXYCONTIN [Concomitant]
  6. CENESTIN [Concomitant]
  7. LODINE [Concomitant]
  8. ABILIFY [Concomitant]
  9. EFFEXOR XR [Concomitant]
  10. GILENYA [Suspect]
     Dosage: 0.5 MG, EVERYDAY, ORAL
     Route: 048
  11. PREDNISONE TAB [Concomitant]
  12. TOVIAZ [Concomitant]
  13. STOOL SOFTENER (DOCUSATE SODIUM) [Concomitant]
  14. PAXIL [Concomitant]
  15. VALIUM [Concomitant]
  16. FLORINEF [Concomitant]
  17. MYSOLINE [Concomitant]
  18. LIPITOR [Concomitant]
  19. VICODIN [Concomitant]
  20. RITALIN [Concomitant]
  21. BUSPAR [Concomitant]
  22. RESTORIL [Concomitant]
  23. PERCOCET [Concomitant]

REACTIONS (1)
  - DECREASED APPETITE [None]
